FAERS Safety Report 9203592 (Version 2)
Quarter: 2013Q4

REPORT INFORMATION
  Report Type: Report from Study
  Country: BR (occurrence: BR)
  Receive Date: 20130402
  Receipt Date: 20131111
  Transmission Date: 20140711
  Serious: Yes (Other)
  Sender: FDA-Public Use
  Company Number: PHHY2013BR031070

PATIENT
  Age: 55 Year
  Sex: Male
  Weight: 75 kg

DRUGS (4)
  1. SANDOSTATIN LAR [Suspect]
     Indication: NEOPLASM
     Dosage: 20 MG, UNK
  2. SANDOSTATIN LAR [Suspect]
     Indication: ACROMEGALY
     Dosage: 20 MG, UNK
     Dates: start: 20130318
  3. SANDOSTATIN LAR [Suspect]
     Dosage: 20 MG, EVERY 8 WEEKS
  4. SANDOSTATIN LAR [Suspect]
     Dosage: 20 MG, EVERY 3 WEEKS
     Dates: start: 20130918

REACTIONS (2)
  - Femur fracture [Recovering/Resolving]
  - Fall [Recovering/Resolving]
